FAERS Safety Report 16240077 (Version 3)
Quarter: 2019Q2

REPORT INFORMATION
  Report Type: Spontaneous
  Country: US (occurrence: US)
  Receive Date: 20190425
  Receipt Date: 20190530
  Transmission Date: 20190711
  Serious: Yes (Other)
  Sender: FDA-Public Use
  Company Number: US-BAYER-2019-083584

PATIENT
  Age: 30 Year
  Sex: Male
  Weight: 122.45 kg

DRUGS (9)
  1. KOGENATE FS [Suspect]
     Active Substance: ANTIHEMOPHILIC FACTOR, HUMAN RECOMBINANT
     Indication: FACTOR IX DEFICIENCY
     Dosage: 3500 IU, DAILY AS NEEDED FOR BREAKTHRU BLEEDING TREATMENT
  2. KOGENATE FS [Suspect]
     Active Substance: ANTIHEMOPHILIC FACTOR, HUMAN RECOMBINANT
     Indication: FACTOR IX DEFICIENCY
     Dosage: UNK UNK, ONCE, TO TREAT EVENTS
     Dates: start: 20190430, end: 20190430
  3. KOGENATE FS [Suspect]
     Active Substance: ANTIHEMOPHILIC FACTOR, HUMAN RECOMBINANT
     Indication: FACTOR IX DEFICIENCY
     Dosage: UNK UNK, ONCE, TO TREAT EVENTS
     Dates: start: 20190428, end: 20190428
  4. KOGENATE FS [Suspect]
     Active Substance: ANTIHEMOPHILIC FACTOR, HUMAN RECOMBINANT
     Indication: FACTOR IX DEFICIENCY
     Dosage: UNK UNK, ONCE, TO TREAT EVENTS
     Dates: start: 20190501, end: 20190501
  5. KOGENATE FS [Suspect]
     Active Substance: ANTIHEMOPHILIC FACTOR, HUMAN RECOMBINANT
     Indication: FACTOR IX DEFICIENCY
     Dosage: UNK UNK, ONCE, TO TREAT EVENTS
     Dates: start: 20190503, end: 20190503
  6. NORCO [Concomitant]
     Active Substance: ACETAMINOPHEN\HYDROCODONE BITARTRATE
  7. KOGENATE FS [Suspect]
     Active Substance: ANTIHEMOPHILIC FACTOR, HUMAN RECOMBINANT
     Indication: FACTOR IX DEFICIENCY
     Dosage: UNK UNK, ONCE, TO TREAT EVENTS
     Dates: start: 20190429, end: 20190429
  8. KOGENATE FS [Suspect]
     Active Substance: ANTIHEMOPHILIC FACTOR, HUMAN RECOMBINANT
     Indication: FACTOR IX DEFICIENCY
     Dosage: 3500 IU, TIW
     Route: 042
     Dates: start: 201901
  9. KOGENATE FS [Suspect]
     Active Substance: ANTIHEMOPHILIC FACTOR, HUMAN RECOMBINANT
     Indication: FACTOR IX DEFICIENCY
     Dosage: UNK UNK, ONCE, TO TREAT EVENTS
     Dates: start: 20190502, end: 20190502

REACTIONS (4)
  - Haemarthrosis [Recovered/Resolved]
  - Product use in unapproved indication [None]
  - Off label use [None]
  - Haemarthrosis [Not Recovered/Not Resolved]

NARRATIVE: CASE EVENT DATE: 201901
